FAERS Safety Report 15925900 (Version 1)
Quarter: 2019Q1

REPORT INFORMATION
  Report Type: Spontaneous
  Country: IT (occurrence: IT)
  Receive Date: 20190206
  Receipt Date: 20190206
  Transmission Date: 20190417
  Serious: Yes (Life-Threatening, Other)
  Sender: FDA-Public Use
  Company Number: IT-AUROBINDO-AUR-APL-2019-002637

PATIENT

DRUGS (19)
  1. FLUOROURACIL. [Suspect]
     Active Substance: FLUOROURACIL
     Indication: METASTASES TO LIVER
     Dosage: UNK UNK, CYCLICAL (11 CYCLES)
     Route: 065
     Dates: start: 201412, end: 201505
  2. IRINOTECAN [Suspect]
     Active Substance: IRINOTECAN
     Indication: METASTASES TO LIVER
  3. OXALIPLATIN. [Suspect]
     Active Substance: OXALIPLATIN
     Dosage: UNK UNK, CYCLICAL (11 CYCLES)
     Route: 065
     Dates: start: 201412, end: 201505
  4. AFLIBERCEPT [Concomitant]
     Active Substance: AFLIBERCEPT
     Indication: COLORECTAL ADENOCARCINOMA
     Dosage: UNK UNK, (12 CYCLICAL)
     Route: 065
     Dates: start: 201702
  5. FLUOROURACIL. [Suspect]
     Active Substance: FLUOROURACIL
     Indication: METASTASES TO BONE
     Dosage: UNK(12 CYCLE)
     Route: 065
     Dates: start: 201702, end: 201708
  6. PANITUMUMAB [Suspect]
     Active Substance: PANITUMUMAB
     Indication: METASTASES TO LIVER
     Dosage: UNK, CYCLICAL (4 CYCLES
     Route: 065
     Dates: start: 201509, end: 201511
  7. IRINOTECAN [Suspect]
     Active Substance: IRINOTECAN
     Indication: COLORECTAL ADENOCARCINOMA
     Dosage: UNK UNK, (12 CYCLICAL)
     Route: 065
     Dates: start: 20170123, end: 20170717
  8. OXALIPLATIN. [Suspect]
     Active Substance: OXALIPLATIN
     Indication: METASTASES TO LIVER
     Dosage: UNK, CYCLICAL (4 CYCLES)
     Route: 065
     Dates: start: 201509, end: 201511
  9. PANITUMUMAB [Suspect]
     Active Substance: PANITUMUMAB
     Indication: COLORECTAL ADENOCARCINOMA
     Dosage: UNK UNK, CYCLICAL (11 CYCLES
     Route: 065
     Dates: start: 201412, end: 201505
  10. DOXYCYCLINE. [Concomitant]
     Active Substance: DOXYCYCLINE
     Indication: PROPHYLAXIS
     Dosage: UNK
     Route: 065
  11. AFLIBERCEPT [Concomitant]
     Active Substance: AFLIBERCEPT
     Indication: METASTASES TO LIVER
     Dosage: UNK UNK, (12 CYCLICAL)
     Route: 065
     Dates: start: 20170123
  12. FLUOROURACIL. [Suspect]
     Active Substance: FLUOROURACIL
     Indication: COLORECTAL ADENOCARCINOMA
     Dosage: UNK(12 CYCLE)
     Route: 065
     Dates: start: 20170123, end: 20170717
  13. AFLIBERCEPT [Concomitant]
     Active Substance: AFLIBERCEPT
     Indication: METASTASES TO BONE
  14. FLUOROURACIL. [Suspect]
     Active Substance: FLUOROURACIL
     Dosage: UNK, CYCLICAL (4 CYCLES)
     Route: 065
     Dates: start: 201509, end: 201511
  15. FOLINIC ACID [Suspect]
     Active Substance: LEUCOVORIN
     Indication: COLORECTAL ADENOCARCINOMA
     Dosage: UNK UNK, (12 CYCLICAL)
     Route: 065
     Dates: start: 201702, end: 201708
  16. FOLINIC ACID [Suspect]
     Active Substance: LEUCOVORIN
     Indication: METASTASES TO BONE
     Dosage: UNK UNK, (12 CYCLICAL)
     Route: 065
     Dates: start: 20170123, end: 20170717
  17. IRINOTECAN [Suspect]
     Active Substance: IRINOTECAN
     Indication: METASTASES TO BONE
     Dosage: UNK UNK, (12 CYCLICAL)
     Route: 065
     Dates: start: 201702, end: 201708
  18. FOLINIC ACID [Suspect]
     Active Substance: LEUCOVORIN
     Indication: METASTASES TO LIVER
     Dosage: UNK, CYCLICAL (4 CYCLES)
     Route: 065
     Dates: start: 201509, end: 201511
  19. FOLINIC ACID [Suspect]
     Active Substance: LEUCOVORIN
     Dosage: UNK UNK, CYCLICAL (11 CYCLES)
     Dates: start: 201412, end: 201505

REACTIONS (7)
  - Colorectal cancer metastatic [Unknown]
  - Toxicity to various agents [Unknown]
  - Hypertension [Unknown]
  - Diarrhoea [Unknown]
  - Asthenia [Unknown]
  - Neutropenia [Unknown]
  - Rash [Unknown]

NARRATIVE: CASE EVENT DATE: 201412
